FAERS Safety Report 7875406-9 (Version None)
Quarter: 2011Q4

REPORT INFORMATION
  Report Type: 
  Country: None (occurrence: None)
  Receive Date: 20111031
  Receipt Date: 20111019
  Transmission Date: 20120403
  Serious: Yes (Hospitalization, Other)
  Sender: FDA-Public Use
  Company Number: PHFR2011GB00652

PATIENT
  Sex: Female

DRUGS (6)
  1. CLOZARIL [Suspect]
     Dosage: 100 MG, NOCTE
     Route: 048
     Dates: start: 20110101
  2. BENDROFLUMETHIAZIDE [Concomitant]
     Indication: HYPERTENSION
     Dosage: 2.5 MG MANE
     Route: 048
  3. RANITIDINE [Concomitant]
     Dosage: 150 MG, QD
     Route: 048
  4. CLOZARIL [Suspect]
     Indication: SCHIZOPHRENIA
     Route: 048
     Dates: start: 20020524
  5. CLOZARIL [Suspect]
     Dosage: 150 MG, QD
     Route: 048
  6. VALPROATE SODIUM [Concomitant]
     Dosage: 300 MG, BID
     Route: 048

REACTIONS (21)
  - BLINDNESS [None]
  - CREPITATIONS [None]
  - HYPERTENSION [None]
  - ANTIPSYCHOTIC DRUG LEVEL ABOVE THERAPEUTIC [None]
  - UROSEPSIS [None]
  - PLEURAL EFFUSION [None]
  - VOMITING [None]
  - SOMNOLENCE [None]
  - CARDIAC FAILURE [None]
  - LUNG CONSOLIDATION [None]
  - WHITE BLOOD CELL COUNT INCREASED [None]
  - SKIN LESION [None]
  - LOWER RESPIRATORY TRACT INFECTION [None]
  - ATELECTASIS [None]
  - CONFUSIONAL STATE [None]
  - DYSPEPSIA [None]
  - URINARY TRACT INFECTION [None]
  - C-REACTIVE PROTEIN INCREASED [None]
  - RENAL INJURY [None]
  - OEDEMA PERIPHERAL [None]
  - GENERAL PHYSICAL HEALTH DETERIORATION [None]
